FAERS Safety Report 25979531 (Version 1)
Quarter: 2025Q4

REPORT INFORMATION
  Report Type: Other
  Country: CA (occurrence: CA)
  Receive Date: 20251030
  Receipt Date: 20251030
  Transmission Date: 20260118
  Serious: Yes (Other)
  Sender: APOTEX
  Company Number: CA-APOTEX-2024AP001353

PATIENT
  Age: 67 Year
  Sex: Female

DRUGS (20)
  1. ELTROMBOPAG [Suspect]
     Active Substance: ELTROMBOPAG
     Indication: Immune thrombocytopenia
     Dosage: 50 MILLIGRAM, QD
     Route: 048
     Dates: start: 202310, end: 202310
  2. ELTROMBOPAG [Suspect]
     Active Substance: ELTROMBOPAG
     Dosage: 25 MILLIGRAM, QD
     Route: 048
     Dates: start: 20231030, end: 202404
  3. ELTROMBOPAG [Suspect]
     Active Substance: ELTROMBOPAG
     Dosage: 50 MILLIGRAM, QD, 2-3 WEEKS
     Route: 048
     Dates: start: 20250913, end: 2025
  4. ELTROMBOPAG [Suspect]
     Active Substance: ELTROMBOPAG
     Dosage: 75 MILLIGRAM, QD
     Route: 065
  5. AZATHIOPRINE [Suspect]
     Active Substance: AZATHIOPRINE
     Indication: Immune thrombocytopenia
     Dosage: UNK
     Route: 065
  6. AZATHIOPRINE [Suspect]
     Active Substance: AZATHIOPRINE
     Dosage: 150 MILLIGRAM
     Route: 065
     Dates: start: 202308, end: 202309
  7. DEXAMETHASONE [Suspect]
     Active Substance: DEXAMETHASONE
     Indication: Immune thrombocytopenia
     Dosage: 40 MILLIGRAM
     Route: 065
     Dates: start: 202306
  8. DEXAMETHASONE [Suspect]
     Active Substance: DEXAMETHASONE
     Dosage: 20 MILLIGRAM
     Route: 065
     Dates: start: 202508
  9. SULFADIAZINE\TRIMETHOPRIM [Concomitant]
     Active Substance: SULFADIAZINE\TRIMETHOPRIM
     Indication: Product used for unknown indication
     Dosage: UNK (3 X WEEKLY)
     Route: 065
  10. CALCIUM [Concomitant]
     Active Substance: CALCIUM
     Indication: Product used for unknown indication
     Dosage: UNK
     Route: 065
  11. LEVOTHYROXINE [Concomitant]
     Active Substance: LEVOTHYROXINE
     Indication: Product used for unknown indication
     Dosage: UNK
     Route: 065
  12. GLUCOSAMINE [Concomitant]
     Active Substance: GLUCOSAMINE
     Indication: Product used for unknown indication
     Dosage: UNK
     Route: 065
  13. DOXYCYCLINE [Concomitant]
     Active Substance: DOXYCYCLINE
     Indication: Product used for unknown indication
     Dosage: UNK
     Route: 065
  14. VITAMIN B12 [Concomitant]
     Active Substance: CYANOCOBALAMIN
     Indication: Product used for unknown indication
     Dosage: UNK
     Route: 065
  15. MAGNESIUM [Concomitant]
     Active Substance: MAGNESIUM
     Indication: Product used for unknown indication
     Dosage: UNK
     Route: 065
  16. RITUXIMAB [Concomitant]
     Active Substance: RITUXIMAB
     Indication: Immune thrombocytopenia
     Dosage: 375 MILLILITRE PER SQUARE METRE, Q.WK.
     Route: 065
     Dates: start: 20231003
  17. PREDNISONE [Concomitant]
     Active Substance: PREDNISONE
     Indication: Immune thrombocytopenia
     Dosage: 30 MILLIGRAM, QD
     Route: 065
     Dates: start: 202307
  18. PREDNISONE [Concomitant]
     Active Substance: PREDNISONE
     Dosage: 70 MILLIGRAM, QD
     Route: 065
     Dates: start: 202307
  19. HUMAN IMMUNOGLOBULIN G [Concomitant]
     Active Substance: HUMAN IMMUNOGLOBULIN G
     Indication: Immune thrombocytopenia
     Dosage: 1 GRAM
     Route: 065
     Dates: start: 202310
  20. HUMAN IMMUNOGLOBULIN G [Concomitant]
     Active Substance: HUMAN IMMUNOGLOBULIN G
     Dosage: UNK UNK, Q.WK.
     Route: 065
     Dates: start: 20231020

REACTIONS (4)
  - Thrombocytopenia [Recovering/Resolving]
  - Product dose omission issue [Unknown]
  - Hepatic enzyme increased [Recovered/Resolved]
  - Drug ineffective [Unknown]

NARRATIVE: CASE EVENT DATE: 20230901
